FAERS Safety Report 8049067-2 (Version None)
Quarter: 2012Q1

REPORT INFORMATION
  Report Type: 
  Country: None (occurrence: None)
  Receive Date: 20120117
  Receipt Date: 20120106
  Transmission Date: 20120608
  Serious: Yes (Other)
  Sender: FDA-Public Use
  Company Number: US-JNJFOC-20120102213

PATIENT
  Sex: Female

DRUGS (5)
  1. PREDNISONE TAB [Concomitant]
  2. REMICADE [Suspect]
     Indication: RHEUMATOID ARTHRITIS
     Route: 042
     Dates: start: 20080601
  3. NARCOTIC ANALGESICS, NOS [Concomitant]
     Indication: ANALGESIC THERAPY
  4. REMICADE [Suspect]
     Route: 042
     Dates: start: 20050101, end: 20060101
  5. METHOTREXATE [Concomitant]

REACTIONS (1)
  - MALIGNANT MELANOMA [None]
